FAERS Safety Report 8257586-9 (Version None)
Quarter: 2012Q2

REPORT INFORMATION
  Report Type: 
  Country: None (occurrence: None)
  Receive Date: 20120403
  Receipt Date: 20120330
  Transmission Date: 20120825
  Serious: Yes (Other)
  Sender: FDA-Public Use
  Company Number: US-ELI_LILLY_AND_COMPANY-US201203009404

PATIENT
  Sex: Female
  Weight: 111.11 kg

DRUGS (12)
  1. ZOCOR [Concomitant]
     Indication: BLOOD CHOLESTEROL INCREASED
     Dosage: 80 MG, QD
     Route: 048
  2. BYETTA [Suspect]
     Dosage: 5 UG, BID
     Route: 058
  3. BYETTA [Suspect]
     Indication: TYPE 2 DIABETES MELLITUS
     Dosage: 5 UG, BID
     Route: 058
  4. ZOCOR [Concomitant]
     Dosage: 40 MG, QD
     Route: 048
     Dates: end: 20120329
  5. BYETTA [Suspect]
     Dosage: 5 UG, QD
     Route: 058
  6. FUROSEMIDE [Concomitant]
     Indication: SWELLING
     Dosage: 40 MG, PRN
     Route: 048
  7. METFORMIN HCL [Concomitant]
     Dosage: 2000 MG, EACH EVENING
     Route: 048
  8. MOBIC [Concomitant]
     Indication: ARTHRITIS
     Dosage: UNK, QD
     Route: 048
  9. ATORVASTATIN [Concomitant]
     Indication: BLOOD CHOLESTEROL INCREASED
     Dosage: 40 MG, QD
     Route: 048
     Dates: start: 20120330
  10. METFORMIN HCL [Concomitant]
     Indication: TYPE 2 DIABETES MELLITUS
     Dosage: 1000 MG, EACH MORNING
     Route: 048
  11. BYETTA [Suspect]
     Dosage: 10 UG, BID
     Route: 058
  12. SYNTHROID [Concomitant]
     Indication: THYROIDECTOMY
     Dosage: 100 UG, QD
     Route: 048

REACTIONS (10)
  - NEOPLASM PROGRESSION [None]
  - NAUSEA [None]
  - BLOOD CREATININE INCREASED [None]
  - INTENTIONAL DRUG MISUSE [None]
  - VOMITING [None]
  - HEADACHE [None]
  - DIARRHOEA [None]
  - WEIGHT DECREASED [None]
  - NECK PAIN [None]
  - BLOOD CHOLESTEROL INCREASED [None]
